FAERS Safety Report 5318212-1 (Version None)
Quarter: 2007Q2

REPORT INFORMATION
  Report Type: 
  Country: None (occurrence: None)
  Receive Date: 20070507
  Receipt Date: 20070427
  Transmission Date: 20071010
  Serious: Yes (Hospitalization, Other)
  Sender: FDA-Public Use
  Company Number: BE-PFIZER INC-2007028238

PATIENT
  Sex: Female
  Weight: 90 kg

DRUGS (11)
  1. CHAMPIX [Suspect]
     Indication: EX-SMOKER
     Route: 048
  2. CYMBALTA [Concomitant]
     Route: 048
  3. ASAFLOW [Concomitant]
     Route: 048
  4. BUSCOPAN [Concomitant]
     Route: 048
  5. BURINEX [Concomitant]
     Route: 048
  6. OMEPRAZOLE [Concomitant]
     Route: 048
  7. TEVETEN [Concomitant]
     Route: 048
  8. GLUCOPHAGE [Concomitant]
     Route: 048
  9. EMCONCOR [Concomitant]
     Route: 048
  10. PERINDOPRIL ERBUMINE [Concomitant]
     Route: 048
  11. ELTHYRONE [Concomitant]
     Route: 048

REACTIONS (4)
  - DYSPNOEA [None]
  - MUSCULOSKELETAL PAIN [None]
  - ORTHOPNOEA [None]
  - PHRENIC NERVE PARALYSIS [None]
